FAERS Safety Report 4773106-5 (Version None)
Quarter: 2005Q3

REPORT INFORMATION
  Report Type: 
  Country: None (occurrence: None)
  Receive Date: 20050916
  Receipt Date: 20050906
  Transmission Date: 20060218
  Serious: Yes (Other)
  Sender: FDA-Public Use
  Company Number: 8011633

PATIENT
  Age: 19 Year
  Sex: Male
  Weight: 86 kg

DRUGS (3)
  1. KEPPRA [Suspect]
     Indication: ANXIETY
     Dosage: 1000 MG 2/D PO
     Route: 048
     Dates: start: 20050902, end: 20050905
  2. KEPPRA [Suspect]
     Indication: DEPRESSION
     Dosage: 1000 MG 2/D PO
     Route: 048
     Dates: start: 20050902, end: 20050905
  3. EFFEXOR [Concomitant]

REACTIONS (6)
  - AGGRESSION [None]
  - ANGER [None]
  - CONDITION AGGRAVATED [None]
  - HOMICIDAL IDEATION [None]
  - SCREAMING [None]
  - SUICIDAL IDEATION [None]
